FAERS Safety Report 19159391 (Version 3)
Quarter: 2021Q2

REPORT INFORMATION
  Report Type: Spontaneous
  Country: PK (occurrence: PK)
  Receive Date: 20210420
  Receipt Date: 20210611
  Transmission Date: 20210717
  Serious: Yes (Other)
  Sender: FDA-Public Use
  Company Number: PK-BAYER-2021-124629

PATIENT
  Age: 50 Year
  Sex: Male

DRUGS (1)
  1. NEXAVAR [Suspect]
     Active Substance: SORAFENIB
     Indication: HEPATOCELLULAR CARCINOMA
     Dosage: 200 MG, BID
     Dates: start: 20210411, end: 20210416

REACTIONS (3)
  - Tachycardia [Recovering/Resolving]
  - Off label use [None]
  - COVID-19 [None]

NARRATIVE: CASE EVENT DATE: 20210411
